FAERS Safety Report 20791710 (Version 2)
Quarter: 2022Q2

REPORT INFORMATION
  Report Type: Report from Study
  Country: US (occurrence: US)
  Receive Date: 20220505
  Receipt Date: 20220603
  Transmission Date: 20220721
  Serious: No
  Sender: FDA-Public Use
  Company Number: US-NOVARTISTESTPH-NVSC2022US103459

PATIENT
  Age: 10 Year
  Sex: Female

DRUGS (1)
  1. COSENTYX [Suspect]
     Active Substance: SECUKINUMAB
     Indication: Psoriasis
     Dosage: 150 MG/KG, QW
     Route: 058
     Dates: start: 20220411, end: 20220504

REACTIONS (4)
  - Fear of injection [Unknown]
  - Injection site mass [Recovered/Resolved]
  - Incorrect dose administered [Recovered/Resolved]
  - Skin plaque [Recovered/Resolved]

NARRATIVE: CASE EVENT DATE: 20220411
